FAERS Safety Report 5945787-1 (Version None)
Quarter: 2008Q4

REPORT INFORMATION
  Report Type: 
  Country: None (occurrence: None)
  Receive Date: 20081106
  Receipt Date: 20081023
  Transmission Date: 20090506
  Serious: Yes (Other)
  Sender: FDA-Public Use
  Company Number: 2008US002061

PATIENT
  Sex: Female

DRUGS (2)
  1. PROTOPIC [Suspect]
     Indication: ECZEMA
     Dosage: TOPICAL
     Route: 061
  2. ELIDEL [Suspect]
     Indication: ECZEMA

REACTIONS (1)
  - LUNG NEOPLASM MALIGNANT [None]
